FAERS Safety Report 20949829 (Version 1)
Quarter: 2022Q2

REPORT INFORMATION
  Report Type: Other
  Country: CA (occurrence: None)
  Receive Date: 20220613
  Receipt Date: 20220613
  Transmission Date: 20220721
  Serious: Yes (Other)
  Sender: FDA-Public Use
  Company Number: CA-ROCHE-3111574

PATIENT
  Sex: Female

DRUGS (6)
  1. ACTEMRA [Suspect]
     Active Substance: TOCILIZUMAB
     Indication: Vasculitis
     Route: 058
     Dates: start: 20210727
  2. ACTEMRA [Suspect]
     Active Substance: TOCILIZUMAB
     Indication: Giant cell arteritis
  3. ADVAIR HFA [Concomitant]
     Active Substance: FLUTICASONE PROPIONATE\SALMETEROL XINAFOATE
  4. JUBLIA [Concomitant]
     Active Substance: EFINACONAZOLE
  5. PREDNISONE [Concomitant]
     Active Substance: PREDNISONE
  6. ACTONEL [Concomitant]
     Active Substance: RISEDRONATE SODIUM

REACTIONS (1)
  - Tuberculosis [Unknown]
